FAERS Safety Report 8442686-0 (Version None)
Quarter: 2012Q2

REPORT INFORMATION
  Report Type: 
  Country: None (occurrence: None)
  Receive Date: 20120615
  Receipt Date: 20111205
  Transmission Date: 20120825
  Serious: No
  Sender: FDA-Public Use
  Company Number: US-NOVEN-11US003736

PATIENT
  Sex: Male

DRUGS (7)
  1. DAYTRANA [Suspect]
     Dosage: UNK
     Route: 062
     Dates: start: 20100101, end: 20111001
  2. ADVAIR DISKUS 100/50 [Concomitant]
     Indication: ASTHMA
     Route: 055
  3. RITALIN [Concomitant]
     Indication: ATTENTION DEFICIT/HYPERACTIVITY DISORDER
     Dosage: 20MG IN AM AND 10MG AT 4PM
     Route: 048
  4. CLONIDINE [Concomitant]
     Indication: INSOMNIA
     Dosage: 0.1 MG, BEDTIME
     Route: 048
  5. MELATONIN [Concomitant]
     Indication: INSOMNIA
     Route: 048
  6. DAYTRANA [Suspect]
     Indication: PRODUCT USED FOR UNKNOWN INDICATION
     Dosage: 30 MG, UNK
     Route: 062
     Dates: start: 20111001
  7. RISPERDAL [Concomitant]
     Indication: ANXIETY
     Dosage: 0.5 MG, BEDTIME
     Route: 048

REACTIONS (3)
  - DISTURBANCE IN SOCIAL BEHAVIOUR [None]
  - HYPERSENSITIVITY [None]
  - DRUG INEFFECTIVE [None]
